FAERS Safety Report 6452759-X (Version None)
Quarter: 2009Q4

REPORT INFORMATION
  Report Type: 
  Country: None (occurrence: None)
  Receive Date: 20091124
  Receipt Date: 20091112
  Transmission Date: 20100525
  Serious: Yes (Other)
  Sender: FDA-Public Use
  Company Number: CN-PFIZER INC-2009297108

PATIENT
  Sex: Female

DRUGS (1)
  1. SULPERAZON [Suspect]
     Indication: NASOPHARYNGITIS
     Dosage: UNK
     Route: 042
     Dates: start: 20090101

REACTIONS (1)
  - SYNCOPE [None]
